FAERS Safety Report 5300461-X (Version None)
Quarter: 2007Q2

REPORT INFORMATION
  Report Type: 
  Country: None (occurrence: None)
  Receive Date: 20070411
  Receipt Date: 20070328
  Transmission Date: 20071010
  Serious: Yes (Other)
  Sender: FDA-Public Use
  Company Number: T200700358

PATIENT
  Age: 39 Year
  Sex: Female

DRUGS (1)
  1. FLUOXETINE [Suspect]
     Dosage: 20 MG, QD IN THE MORNING, ORAL
     Route: 048
     Dates: start: 20070301, end: 20070320

REACTIONS (1)
  - PHARYNGEAL OEDEMA [None]
